FAERS Safety Report 10227848 (Version 1)
Quarter: 2014Q2

REPORT INFORMATION
  Report Type: Spontaneous
  Country: US (occurrence: None)
  Receive Date: 20140609
  Receipt Date: 20140609
  Transmission Date: 20141212
  Serious: Yes (Life-Threatening, Hospitalization, Other)
  Sender: FDA-Public Use
  Company Number: None

PATIENT
  Age: 72 Year
  Sex: Female
  Weight: 77 kg

DRUGS (5)
  1. PREMARIN VAGINAL CREAM [Suspect]
     Indication: ATROPHIC VULVOVAGINITIS
     Dosage: 0.5 GRAMS?3 DAYS PER WEEK?VAGINAL
     Route: 067
     Dates: start: 20120828, end: 20140416
  2. LANOXIN [Concomitant]
  3. PROPRANOLOL [Concomitant]
  4. CRESTOR [Concomitant]
  5. TRILIPIX [Concomitant]

REACTIONS (1)
  - Oestrogen receptor positive breast cancer [None]
